FAERS Safety Report 12272165 (Version 1)
Quarter: 2016Q2

REPORT INFORMATION
  Report Type: Spontaneous
  Country: IT (occurrence: IT)
  Receive Date: 20160415
  Receipt Date: 20160415
  Transmission Date: 20160815
  Serious: Yes (Other)
  Sender: FDA-Public Use
  Company Number: IT-WEST-WARD PHARMACEUTICALS CORP.-IT-H14001-16-00592

PATIENT
  Age: 7 Year
  Sex: Male

DRUGS (7)
  1. PHENYTOIN. [Suspect]
     Active Substance: PHENYTOIN
     Route: 065
  2. PHENYTOIN. [Suspect]
     Active Substance: PHENYTOIN
     Indication: CLONIC CONVULSION
     Route: 065
  3. PHENYTOIN. [Suspect]
     Active Substance: PHENYTOIN
     Indication: TONIC CONVULSION
     Route: 065
  4. CLOBAZAM [Concomitant]
     Active Substance: CLOBAZAM
     Indication: CLONIC CONVULSION
     Route: 065
  5. TOPIRAMATE. [Concomitant]
     Active Substance: TOPIRAMATE
     Indication: CLONIC CONVULSION
     Route: 065
  6. TOPIRAMATE. [Concomitant]
     Active Substance: TOPIRAMATE
     Indication: TONIC CONVULSION
  7. CLOBAZAM [Concomitant]
     Active Substance: CLOBAZAM
     Indication: TONIC CONVULSION
     Route: 065

REACTIONS (4)
  - Coma [Recovered/Resolved]
  - Anticonvulsant drug level increased [Recovered/Resolved]
  - Neurotoxicity [Recovered/Resolved]
  - Lethargy [Recovered/Resolved]
